FAERS Safety Report 5093315-8 (Version None)
Quarter: 2006Q3

REPORT INFORMATION
  Report Type: 
  Country: None (occurrence: None)
  Receive Date: 20060828
  Receipt Date: 20060821
  Transmission Date: 20061208
  Serious: Yes (Other)
  Sender: FDA-Public Use
  Company Number: GXKR2006GB05076

PATIENT
  Age: 53 Year
  Sex: Female

DRUGS (2)
  1. ASPIRIN [Suspect]
     Indication: ANTIPLATELET THERAPY
     Dosage: 75 MG, QD, ORAL
     Route: 048
     Dates: start: 20050708
  2. SIMVASTATIN [Suspect]
     Indication: BLOOD CHOLESTEROL INCREASED
     Dosage: 40 MG, QD, ORAL
     Route: 048

REACTIONS (5)
  - DUODENAL ULCER [None]
  - DYSPNOEA [None]
  - FAECES DISCOLOURED [None]
  - GASTRITIS [None]
  - HAEMOGLOBIN DECREASED [None]
